FAERS Safety Report 7152362-2 (Version None)
Quarter: 2010Q4

REPORT INFORMATION
  Report Type: 
  Country: None (occurrence: None)
  Receive Date: 20101123
  Receipt Date: 20101109
  Transmission Date: 20110411
  Serious: Yes (Hospitalization)
  Sender: FDA-Public Use
  Company Number: 021659

PATIENT
  Sex: Male

DRUGS (30)
  1. NEUPRO [Suspect]
     Indication: PARKINSON'S DISEASE
     Dosage: SEE IMAGE
     Route: 062
     Dates: start: 20080604, end: 20080608
  2. NEUPRO [Suspect]
     Indication: PARKINSON'S DISEASE
     Dosage: SEE IMAGE
     Route: 062
     Dates: start: 20080609, end: 20080619
  3. NEUPRO [Suspect]
     Indication: PARKINSON'S DISEASE
     Dosage: SEE IMAGE
     Route: 062
     Dates: start: 20080620, end: 20080622
  4. NEUPRO [Suspect]
     Indication: PARKINSON'S DISEASE
     Dosage: SEE IMAGE
     Route: 062
     Dates: start: 20080623, end: 20081102
  5. NEUPRO [Suspect]
     Indication: PARKINSON'S DISEASE
     Dosage: SEE IMAGE
     Route: 062
     Dates: start: 20081103, end: 20081109
  6. NEUPRO [Suspect]
     Indication: PARKINSON'S DISEASE
     Dosage: SEE IMAGE
     Route: 062
     Dates: start: 20081110, end: 20090302
  7. NEUPRO [Suspect]
     Indication: PARKINSON'S DISEASE
     Dosage: SEE IMAGE
     Route: 062
     Dates: start: 20090303, end: 20090430
  8. NEUPRO [Suspect]
     Indication: PARKINSON'S DISEASE
     Dosage: SEE IMAGE
     Route: 062
     Dates: start: 20090501, end: 20090507
  9. NEUPRO [Suspect]
     Indication: PARKINSON'S DISEASE
     Dosage: SEE IMAGE
     Route: 062
     Dates: start: 20090608, end: 20090625
  10. NEUPRO [Suspect]
     Indication: PARKINSON'S DISEASE
     Dosage: SEE IMAGE
     Route: 062
     Dates: start: 20090626
  11. PRIMIDONE [Suspect]
     Dosage: SEE IMAGE
     Dates: start: 20080707, end: 20080708
  12. PRIMIDONE [Suspect]
     Dosage: SEE IMAGE
     Dates: start: 20080709, end: 20080709
  13. PRIMIDONE [Suspect]
     Dosage: SEE IMAGE
     Dates: start: 20080710, end: 20080901
  14. PRIMIDONE [Suspect]
     Dosage: SEE IMAGE
     Dates: start: 20080916, end: 20081103
  15. PRIMIDONE [Suspect]
     Dosage: SEE IMAGE
     Dates: start: 20081104, end: 20081110
  16. PRIMIDONE [Suspect]
     Dosage: SEE IMAGE
     Dates: start: 20081111, end: 20100422
  17. PRIMIDONE [Suspect]
     Dosage: SEE IMAGE
     Dates: start: 20100422
  18. CLARITIN [Suspect]
     Dosage: SEE IMAGE
     Dates: start: 20081104, end: 20081108
  19. CLARITIN [Suspect]
     Dosage: SEE IMAGE
     Dates: start: 20081109, end: 20081110
  20. CLARITIN [Suspect]
     Dosage: SEE IMAGE
     Dates: start: 20081111, end: 20090312
  21. CLARITIN [Suspect]
     Dosage: SEE IMAGE
     Dates: start: 20090313, end: 20090608
  22. CLARITIN [Suspect]
     Dosage: SEE IMAGE
     Dates: start: 20090509, end: 20091109
  23. CLARITIN [Suspect]
     Dosage: SEE IMAGE
     Dates: start: 20091110
  24. SELEGILINE (SELEGELIN) [Suspect]
     Dosage: (5 MG QD)
     Dates: start: 20081114
  25. MADOPAR /00349201/ (MADOPAR) [Suspect]
     Dosage: (100 MG QD)
     Dates: start: 20100608
  26. LEVOTHYROXINE SODIUM [Concomitant]
  27. MOVICOL /01749801/ [Concomitant]
  28. NOVORAPID [Concomitant]
  29. CLONAZEPAM [Concomitant]
  30. PROTAPHANE /01428201/ [Concomitant]

REACTIONS (3)
  - HALLUCINATION [None]
  - PARKINSONISM [None]
  - SLEEP DISORDER [None]
